FAERS Safety Report 4305948-4 (Version None)
Quarter: 2004Q1

REPORT INFORMATION
  Report Type: 
  Country: None (occurrence: None)
  Receive Date: 20040225
  Receipt Date: 20040218
  Transmission Date: 20041129
  Serious: Yes (Hospitalization)
  Sender: FDA-Public Use
  Company Number: 2003CG01310

PATIENT
  Age: 3 Day
  Sex: Male
  Weight: 3 kg

DRUGS (2)
  1. TENORMIN [Suspect]
     Dosage: 25 MG DAILY TM
     Route: 063
  2. TENORMIN [Suspect]

REACTIONS (9)
  - ASPARTATE AMINOTRANSFERASE INCREASED [None]
  - BLOOD BILIRUBIN INCREASED [None]
  - DRUG EXPOSURE VIA BREAST MILK [None]
  - GAMMA-GLUTAMYLTRANSFERASE INCREASED [None]
  - HAPTOGLOBIN DECREASED [None]
  - JAUNDICE NEONATAL [None]
  - LIVER DISORDER [None]
  - MATERNAL DRUGS AFFECTING FOETUS [None]
  - NEONATAL DISORDER [None]
